FAERS Safety Report 8496708-1 (Version None)
Quarter: 2012Q2

REPORT INFORMATION
  Report Type: 
  Country: None (occurrence: None)
  Receive Date: 20120629
  Receipt Date: 20120619
  Transmission Date: 20120825
  Serious: Yes (Hospitalization)
  Sender: FDA-Public Use
  Company Number: DSJ-2012-04541

PATIENT
  Age: 51 Year
  Sex: Female

DRUGS (3)
  1. BENICAR [Suspect]
     Indication: HYPERTENSION
     Dosage: 20;40 MG (20;40  MG, 1 IN 1 D), PER ORAL
     Route: 048
     Dates: start: 20120227, end: 20120501
  2. BENICAR [Suspect]
     Indication: HYPERTENSION
     Dosage: 20;40 MG (20;40  MG, 1 IN 1 D), PER ORAL
     Route: 048
     Dates: start: 20090101, end: 20120226
  3. SIMVASTATIN [Concomitant]

REACTIONS (6)
  - FATIGUE [None]
  - BLOOD PRESSURE INCREASED [None]
  - ARRHYTHMIA [None]
  - DIZZINESS [None]
  - CONDITION AGGRAVATED [None]
  - DRUG INEFFECTIVE [None]
